FAERS Safety Report 15087509 (Version 2)
Quarter: 2018Q3

REPORT INFORMATION
  Report Type: Spontaneous
  Country: BR (occurrence: BR)
  Receive Date: 20180628
  Receipt Date: 20180727
  Transmission Date: 20181010
  Serious: Yes (Hospitalization)
  Sender: FDA-Public Use
  Company Number: BR-AMGEN-BRASP2018088393

PATIENT
  Age: 18 Year
  Sex: Male

DRUGS (2)
  1. ENBREL [Suspect]
     Active Substance: ETANERCEPT
     Indication: PRODUCT USED FOR UNKNOWN INDICATION
     Dosage: UNK
     Route: 065
     Dates: start: 201711
  2. ENBREL [Suspect]
     Active Substance: ETANERCEPT
     Dosage: UNK
     Route: 065
     Dates: start: 201804

REACTIONS (14)
  - Wound [Unknown]
  - Arthralgia [Unknown]
  - Disease progression [Unknown]
  - Arthritis [Not Recovered/Not Resolved]
  - Product use issue [Unknown]
  - Alopecia [Unknown]
  - Asthenia [Unknown]
  - Pain [Not Recovered/Not Resolved]
  - Weight decreased [Unknown]
  - Psoriasis [Not Recovered/Not Resolved]
  - Feeling abnormal [Unknown]
  - Vomiting [Unknown]
  - Loss of personal independence in daily activities [Not Recovered/Not Resolved]
  - Drug ineffective [Not Recovered/Not Resolved]
